FAERS Safety Report 24672038 (Version 1)
Quarter: 2024Q4

REPORT INFORMATION
  Report Type: Report from Study
  Country: RU (occurrence: RU)
  Receive Date: 20241127
  Receipt Date: 20241127
  Transmission Date: 20250115
  Serious: Yes (Other)
  Sender: NOVARTIS
  Company Number: RU-002147023-NVSC2024RU225046

PATIENT
  Age: 48 Year
  Sex: Female
  Weight: 66 kg

DRUGS (3)
  1. INCLISIRAN [Suspect]
     Active Substance: INCLISIRAN
     Indication: Dyslipidaemia
     Dosage: 284 MG, ONCE (SINGLE TIME)
     Route: 058
     Dates: start: 20241018
  2. TELMISARTAN [Concomitant]
     Active Substance: TELMISARTAN
     Indication: Product used for unknown indication
     Dosage: 20 MG, QD
     Route: 065
  3. OMACOR [Concomitant]
     Active Substance: OMEGA-3-ACID ETHYL ESTERS
     Indication: Product used for unknown indication
     Dosage: 1000 MG, QD
     Route: 065

REACTIONS (3)
  - Blood uric acid increased [Not Recovered/Not Resolved]
  - Blood cholesterol increased [Not Recovered/Not Resolved]
  - Low density lipoprotein increased [Not Recovered/Not Resolved]

NARRATIVE: CASE EVENT DATE: 20241120
